FAERS Safety Report 9897284 (Version 1)
Quarter: 2014Q1

REPORT INFORMATION
  Report Type: Spontaneous
  Country: AU (occurrence: AU)
  Receive Date: 20140214
  Receipt Date: 20140214
  Transmission Date: 20141002
  Serious: Yes (Hospitalization)
  Sender: FDA-Public Use
  Company Number: AU-ACCORD-021823

PATIENT
  Age: 56 Year
  Sex: Female

DRUGS (7)
  1. TACROLIMUS [Suspect]
     Indication: IMMUNOSUPPRESSION
     Dosage: ACHIEVING TROUGH LEVELS 8.2 - 16.5 UG/L IN THE FIRST MONTH AND 7 - 9 UG/L IN THE?FOLLOWING 18 MONTH
  2. MYCOPHENOLIC ACID [Suspect]
     Indication: IMMUNOSUPPRESSION
  3. METHYLPREDNISOLONE [Suspect]
     Indication: IMMUNOSUPPRESSION
     Route: 042
  4. PREDNISOLONE [Suspect]
     Indication: IMMUNOSUPPRESSION
     Dosage: TITRATING DOWN FROM 30MG, ONCE DAILY THEN REDUCED TO 5MG DAILY
  5. BASILIXIMAB [Suspect]
     Indication: IMMUNOSUPPRESSION
  6. SULFAMETHOXAZOLE/TRIMETHOPRIM [Concomitant]
     Indication: PROPHYLAXIS
     Dosage: 800/160MG
  7. VALGANCICLOVIR/VALGANCICLOVIR HYDROCHLORIDE [Concomitant]
     Indication: PROPHYLAXIS
     Dosage: RECEIVED FOR A PERIOD OF 6 MONTHS

REACTIONS (4)
  - Escherichia infection [Recovered/Resolved]
  - Pseudomonas infection [Recovered/Resolved]
  - Klebsiella infection [Recovered/Resolved]
  - Malacoplakia vesicae [Recovered/Resolved]
